FAERS Safety Report 18194851 (Version 1)
Quarter: 2020Q3

REPORT INFORMATION
  Report Type: Report from Study
  Country: EC (occurrence: EC)
  Receive Date: 20200825
  Receipt Date: 20200825
  Transmission Date: 20201103
  Serious: Yes (Hospitalization)
  Sender: FDA-Public Use
  Company Number: EC-COLLEGIUM PHARMACEUTICAL, INC.-EC-2020COL000618

PATIENT
  Age: 78 Year
  Sex: Female

DRUGS (1)
  1. TAPENTADOL EXTENDED RELEASE [Suspect]
     Active Substance: TAPENTADOL
     Indication: BACK PAIN
     Dosage: UNK
     Route: 065

REACTIONS (3)
  - Blood triglycerides abnormal [Unknown]
  - Blood calcium abnormal [Unknown]
  - Blood potassium decreased [Unknown]
